FAERS Safety Report 5856188-9 (Version None)
Quarter: 2008Q3

REPORT INFORMATION
  Report Type: 
  Country: None (occurrence: None)
  Receive Date: 20080825
  Receipt Date: 20080820
  Transmission Date: 20090109
  Serious: Yes (Hospitalization, Disabling)
  Sender: FDA-Public Use
  Company Number: A0731819A

PATIENT
  Sex: Male
  Weight: 104.5 kg

DRUGS (7)
  1. AVANDIA [Suspect]
     Dosage: 4MG TWICE PER DAY
     Route: 048
     Dates: start: 20000101, end: 20070525
  2. ATENOLOL [Concomitant]
     Dates: start: 20000404, end: 20070410
  3. LIPITOR [Concomitant]
     Dates: start: 19981203, end: 20070629
  4. ACCUPRIL [Concomitant]
  5. DILTIAZEM [Concomitant]
  6. MICROZIDE [Concomitant]
  7. PLETAL [Concomitant]

REACTIONS (5)
  - CARDIAC DISORDER [None]
  - CHEST PAIN [None]
  - MYOCARDIAL INFARCTION [None]
  - OEDEMA [None]
  - PAIN [None]
